FAERS Safety Report 24646669 (Version 1)
Quarter: 2024Q4

REPORT INFORMATION
  Report Type: Spontaneous
  Country: CN (occurrence: CN)
  Receive Date: 20241121
  Receipt Date: 20241121
  Transmission Date: 20250115
  Serious: Yes (Other)
  Sender: BAXTER
  Company Number: None

PATIENT
  Age: 63 Year
  Sex: Male
  Weight: 60 kg

DRUGS (2)
  1. GLYCERIN\MEDIUM-CHAIN TRIGLYCERIDES\PHOSPHOLIPID\SOYBEAN OIL [Suspect]
     Active Substance: GLYCERIN\MEDIUM-CHAIN TRIGLYCERIDES\PHOSPHOLIPID\SOYBEAN OIL
     Indication: Lung neoplasm malignant
     Dosage: 250 ML, ONCE A DAY (DOSAGE FORM: INJECTION SOLUTION)
     Route: 041
     Dates: start: 20241111, end: 20241111
  2. GLYCERIN\MEDIUM-CHAIN TRIGLYCERIDES\PHOSPHOLIPID\SOYBEAN OIL [Suspect]
     Active Substance: GLYCERIN\MEDIUM-CHAIN TRIGLYCERIDES\PHOSPHOLIPID\SOYBEAN OIL
     Indication: Lung adenocarcinoma stage IV

REACTIONS (1)
  - Rash [Recovering/Resolving]

NARRATIVE: CASE EVENT DATE: 20241111
